FAERS Safety Report 4584921-5 (Version None)
Quarter: 2005Q1

REPORT INFORMATION
  Report Type: 
  Country: None (occurrence: None)
  Receive Date: 20050217
  Receipt Date: 20041112
  Transmission Date: 20050727
  Serious: No
  Sender: FDA-Public Use
  Company Number: US-GLAXOSMITHKLINE-A0533757A

PATIENT
  Age: 59 Year
  Sex: Female

DRUGS (2)
  1. WELLBUTRIN XL [Suspect]
     Dosage: 150MG PER DAY
     Route: 048
     Dates: start: 20041107
  2. ASPIRIN [Concomitant]

REACTIONS (7)
  - AGITATION [None]
  - ANOREXIA [None]
  - ANXIETY [None]
  - HEART RATE INCREASED [None]
  - HYPERHIDROSIS [None]
  - NAUSEA [None]
  - TREMOR [None]
